FAERS Safety Report 10258258 (Version 3)
Quarter: 2014Q3

REPORT INFORMATION
  Report Type: Spontaneous
  Country: GB (occurrence: GB)
  Receive Date: 20140625
  Receipt Date: 20140804
  Transmission Date: 20150326
  Serious: Yes (Other)
  Sender: FDA-Public Use
  Company Number: GB-ACTAVISPR-2014-10054

PATIENT
  Age: 39 Year
  Sex: Female

DRUGS (8)
  1. MOTILIUM [Concomitant]
     Active Substance: DOMPERIDONE
     Indication: MALAISE
     Dosage: UNK, PRN
     Route: 065
  2. SERC                               /00034201/ [Concomitant]
     Dosage: 16 MG, TID
     Route: 065
  3. MIRTAZAPINE. [Suspect]
     Active Substance: MIRTAZAPINE
     Dosage: 30 MG, QPM
     Route: 048
     Dates: start: 20140512
  4. BETAHISTIN                         /00141802/ [Concomitant]
     Dosage: 16 MG, QAM
     Route: 065
     Dates: start: 20140513
  5. BETAHISTIN                         /00141802/ [Concomitant]
     Indication: MENIERE^S DISEASE
     Dosage: 60 MG, TID
     Route: 065
     Dates: start: 20140425
  6. MIRTAZAPINE. [Suspect]
     Active Substance: MIRTAZAPINE
     Indication: MENIERE^S DISEASE
     Dosage: 15 MG, QPM
     Route: 048
     Dates: start: 20140425
  7. BENDROFLUMETHIAZIDE [Concomitant]
     Active Substance: BENDROFLUMETHIAZIDE
     Indication: MENIERE^S DISEASE
     Dosage: 5 MG, QAM
     Route: 065
     Dates: start: 201312
  8. PROCHLORPERAZINE. [Concomitant]
     Active Substance: PROCHLORPERAZINE
     Indication: PRODUCT USED FOR UNKNOWN INDICATION
     Dosage: UNK, PRN
     Route: 002

REACTIONS (13)
  - Nausea [Not Recovered/Not Resolved]
  - Rash [Unknown]
  - Dyspnoea [Not Recovered/Not Resolved]
  - Pruritus generalised [Unknown]
  - Pain in extremity [Not Recovered/Not Resolved]
  - Anxiety [Unknown]
  - Panic reaction [Unknown]
  - Depression [Unknown]
  - Abdominal distension [Unknown]
  - Vertigo [Not Recovered/Not Resolved]
  - Tremor [Unknown]
  - Malaise [Unknown]
  - Condition aggravated [Unknown]

NARRATIVE: CASE EVENT DATE: 20140501
